FAERS Safety Report 9108456 (Version 2)
Quarter: 2013Q2

REPORT INFORMATION
  Report Type: Spontaneous
  Country: FR (occurrence: FR)
  Receive Date: 20130222
  Receipt Date: 20130404
  Transmission Date: 20140414
  Serious: Yes (Hospitalization)
  Sender: FDA-Public Use
  Company Number: FR-UCBSA-078280

PATIENT
  Age: 29 Year
  Sex: Female

DRUGS (2)
  1. CIMZIA [Suspect]
     Indication: RHEUMATOID ARTHRITIS
     Dosage: UNKNOWN DOSE 1 INJECTION EVERY 2 WEEKS
     Route: 058
     Dates: start: 20121215, end: 20130104
  2. METHOTREXATE [Concomitant]
     Indication: RHEUMATOID ARTHRITIS
     Dosage: UNKNOWN DOSE
     Dates: start: 2005

REACTIONS (3)
  - Face oedema [Recovered/Resolved]
  - Localised oedema [Recovered/Resolved]
  - Angioedema [Recovered/Resolved]
